FAERS Safety Report 7357724-6 (Version None)
Quarter: 2011Q1

REPORT INFORMATION
  Report Type: 
  Country: None (occurrence: None)
  Receive Date: 20110309
  Receipt Date: 20110222
  Transmission Date: 20110831
  Serious: Yes (Hospitalization)
  Sender: FDA-Public Use
  Company Number: 11-092

PATIENT
  Age: 24 Year
  Sex: Male

DRUGS (6)
  1. LACTULOSE [Concomitant]
  2. HYOSCINE HBR HYT [Concomitant]
  3. KALTERA (LOPINVIR, RITONAVIR) [Concomitant]
  4. TRUVADA [Concomitant]
  5. IBUPROFEN [Suspect]
     Dosage: 2400 MGORAL
     Route: 048
     Dates: start: 20101001
  6. NIQUITIN (NICOTINE, NICOTINE POLACRILEX, NICOTINE RESINATE) [Concomitant]

REACTIONS (2)
  - SUICIDE ATTEMPT [None]
  - MULTIPLE DRUG OVERDOSE [None]
